FAERS Safety Report 23961586 (Version 2)
Quarter: 2024Q2

REPORT INFORMATION
  Report Type: Report from Study
  Country: US (occurrence: US)
  Receive Date: 20240611
  Receipt Date: 20240624
  Transmission Date: 20240716
  Serious: No
  Sender: FDA-Public Use
  Company Number: US-ABBVIE-5791238

PATIENT
  Sex: Female

DRUGS (7)
  1. HUMIRA [Suspect]
     Active Substance: ADALIMUMAB
     Indication: Rheumatoid arthritis
     Route: 058
     Dates: start: 20240513
  2. HUMIRA [Suspect]
     Active Substance: ADALIMUMAB
     Indication: Gait disturbance
  3. HUMIRA [Suspect]
     Active Substance: ADALIMUMAB
     Indication: Arthritis
  4. HUMIRA [Suspect]
     Active Substance: ADALIMUMAB
     Indication: Arthralgia
  5. HUMIRA [Suspect]
     Active Substance: ADALIMUMAB
     Indication: Arthritis
  6. HUMIRA [Suspect]
     Active Substance: ADALIMUMAB
     Indication: Arthralgia
  7. PROCAINE [Concomitant]
     Active Substance: PROCAINE
     Indication: Anaesthesia procedure

REACTIONS (13)
  - Skin laceration [Recovered/Resolved with Sequelae]
  - Migraine [Recovered/Resolved with Sequelae]
  - Brain fog [Recovered/Resolved with Sequelae]
  - Wound complication [Not Recovered/Not Resolved]
  - Unevaluable event [Not Recovered/Not Resolved]
  - Gait disturbance [Unknown]
  - Joint range of motion decreased [Not Recovered/Not Resolved]
  - Pain [Unknown]
  - Dizziness [Unknown]
  - Injury [Recovered/Resolved]
  - Wound haemorrhage [Unknown]
  - Joint range of motion decreased [Not Recovered/Not Resolved]
  - Peripheral swelling [Not Recovered/Not Resolved]

NARRATIVE: CASE EVENT DATE: 20240101
